FAERS Safety Report 11146661 (Version 2)
Quarter: 2015Q2

REPORT INFORMATION
  Report Type: Spontaneous
  Country: US (occurrence: US)
  Receive Date: 20150528
  Receipt Date: 20150612
  Transmission Date: 20150821
  Serious: Yes (Other)
  Sender: FDA-Public Use
  Company Number: US-UNITED THERAPEUTICS-UNT-2015-006153

PATIENT
  Age: 48 Year
  Sex: Female
  Weight: 58.5 kg

DRUGS (4)
  1. REMODULIN [Suspect]
     Active Substance: TREPROSTINIL
     Indication: PULMONARY HYPERTENSION
     Dosage: 0.122 ?G/KG, CONTINUING
     Route: 041
     Dates: start: 20130322
  2. COUMADIN [Concomitant]
     Active Substance: WARFARIN SODIUM
     Indication: PRODUCT USED FOR UNKNOWN INDICATION
  3. ADCIRCA [Concomitant]
     Active Substance: TADALAFIL
     Indication: PRODUCT USED FOR UNKNOWN INDICATION
  4. LETAIRIS [Concomitant]
     Active Substance: AMBRISENTAN
     Indication: PRODUCT USED FOR UNKNOWN INDICATION

REACTIONS (7)
  - Fatigue [Unknown]
  - Dyspnoea exertional [Unknown]
  - Therapy cessation [Unknown]
  - Palpitations [Unknown]
  - Oxygen saturation decreased [Unknown]
  - Device issue [Unknown]
  - Malaise [Unknown]

NARRATIVE: CASE EVENT DATE: 20150520
